FAERS Safety Report 4277289-5 (Version None)
Quarter: 2004Q1

REPORT INFORMATION
  Report Type: 
  Country: None (occurrence: None)
  Receive Date: 20040120
  Receipt Date: 20040105
  Transmission Date: 20041129
  Serious: Yes (Life-Threatening)
  Sender: FDA-Public Use
  Company Number: 200410022FR

PATIENT
  Age: 79 Year
  Sex: Female

DRUGS (7)
  1. PREDNISONE [Suspect]
     Indication: ESCHAR
     Dosage: 60 MG/DAY PO
     Route: 048
  2. DI-ANTALVIC CAPSULES [Suspect]
     Indication: DECUBITUS ULCER
     Dosage: QD PO
     Route: 048
  3. FUROSEMIDE [Suspect]
     Indication: CARDIAC FAILURE
     Dosage: 40 MG/DAY PO
     Route: 048
     Dates: end: 20031214
  4. LEVOFLOXACIN [Suspect]
     Indication: BRONCHOPNEUMONIA
     Dosage: 0.5 G/DAY PO
     Route: 048
  5. OMEPRAZOLE [Suspect]
     Dosage: PO
     Route: 048
     Dates: start: 20030902, end: 20031214
  6. CLAVULANATE POTASSIUM [Concomitant]
  7. AMOXICILLIN TRIHYDRATE (AUGMENTIN) [Concomitant]

REACTIONS (7)
  - BRONCHOPNEUMONIA [None]
  - BRONCHOPNEUMOPATHY [None]
  - CARDIAC FAILURE [None]
  - CLOSTRIDIUM COLITIS [None]
  - DECUBITUS ULCER [None]
  - ESCHAR [None]
  - HYPOGLYCAEMIA [None]
